FAERS Safety Report 5377097-8 (Version None)
Quarter: 2007Q2

REPORT INFORMATION
  Report Type: 
  Country: None (occurrence: None)
  Receive Date: 20070628
  Receipt Date: 20070628
  Transmission Date: 20071010
  Serious: Yes (Hospitalization)
  Sender: FDA-Public Use
  Company Number: None

PATIENT
  Age: 88 Year
  Sex: Male

DRUGS (2)
  1. SPIRONOLACTONE [Suspect]
     Dosage: 25MG EVERY DAY PO
     Route: 048
     Dates: start: 20070207, end: 20070517
  2. LISINOPRIL [Suspect]
     Dosage: 10MG BID PO
     Route: 048

REACTIONS (1)
  - HYPERKALAEMIA [None]
